FAERS Safety Report 7409436-8 (Version None)
Quarter: 2011Q1

REPORT INFORMATION
  Report Type: 
  Country: None (occurrence: None)
  Receive Date: 20110301
  Receipt Date: 20100810
  Transmission Date: 20110831
  Serious: Yes (Other)
  Sender: FDA-Public Use
  Company Number: RB-14095-2010

PATIENT
  Sex: Male

DRUGS (2)
  1. SUBOXONE [Suspect]
     Indication: DRUG DEPENDENCE
     Dosage: (8 MG, 8 MG ONCE SUBLINGUAL), (4 MG, 4 MG ONCE SUBLINGUAL)
     Route: 060
     Dates: start: 20100810, end: 20100810
  2. SUBOXONE [Suspect]
     Indication: DRUG DEPENDENCE
     Dosage: (8 MG, 8 MG ONCE SUBLINGUAL), (4 MG, 4 MG ONCE SUBLINGUAL)
     Route: 060
     Dates: start: 20100809, end: 20100809

REACTIONS (4)
  - DYSPNOEA [None]
  - WHEEZING [None]
  - RASH [None]
  - DRUG WITHDRAWAL SYNDROME [None]
